FAERS Safety Report 22129767 (Version 2)
Quarter: 2023Q1

REPORT INFORMATION
  Report Type: Report from Study
  Country: US (occurrence: US)
  Receive Date: 20230323
  Receipt Date: 20230328
  Transmission Date: 20230418
  Serious: Yes (Other)
  Sender: FDA-Public Use
  Company Number: US-002147023-NVSC2023US063114

PATIENT
  Sex: Male

DRUGS (23)
  1. LOCAMETZ [Suspect]
     Active Substance: PSMA-HBED-CC
     Indication: Prostate cancer metastatic
     Dosage: 4.38 MCI, ONCE/SINGLE
     Route: 042
     Dates: start: 20230202
  2. PLUVICTO [Suspect]
     Active Substance: LUTETIUM LU-177 VIPIVOTIDE TETRAXETAN
     Indication: Prostate cancer metastatic
     Dosage: 205.92 MCI, ONCE/SINGLE
     Route: 042
     Dates: start: 20230309
  3. ABIRATERONE [Suspect]
     Active Substance: ABIRATERONE
     Indication: Product used for unknown indication
     Dosage: 1000 MG ONCE
     Route: 065
     Dates: start: 20230210
  4. ACETAMINOPHEN [Concomitant]
     Active Substance: ACETAMINOPHEN
     Indication: Pain
     Dosage: UNK
     Route: 065
     Dates: start: 20010730
  5. XTAMPZA ER [Concomitant]
     Active Substance: OXYCODONE
     Indication: Sciatica
     Dosage: UNK
     Route: 065
     Dates: start: 20230210
  6. XTAMPZA ER [Concomitant]
     Active Substance: OXYCODONE
     Indication: Back pain
  7. MUPIROCIN [Concomitant]
     Active Substance: MUPIROCIN
     Indication: Skin lesion
     Dosage: UNK
     Route: 065
     Dates: start: 20230306
  8. ONDANSETRON [Concomitant]
     Active Substance: ONDANSETRON
     Indication: Prophylaxis of nausea and vomiting
     Dosage: UNK
     Route: 065
     Dates: start: 20230309
  9. CANNABIS SATIVA SUBSP. INDICA TOP [Concomitant]
     Active Substance: CANNABIS SATIVA SUBSP. INDICA TOP
     Indication: Back pain
     Dosage: UNK
     Route: 065
     Dates: start: 20230201
  10. FLUOROURACIL [Concomitant]
     Active Substance: FLUOROURACIL
     Indication: Basal cell carcinoma
     Dosage: UNK
     Route: 065
     Dates: start: 20230227
  11. MORPHINE [Concomitant]
     Active Substance: MORPHINE
     Indication: Back pain
     Dosage: UNK
     Route: 065
     Dates: start: 20230313
  12. OMEPRAZOLE [Concomitant]
     Active Substance: OMEPRAZOLE
     Indication: Gastrooesophageal reflux disease
     Dosage: UNK
     Route: 065
     Dates: start: 2005
  13. FLUTICASONE [Concomitant]
     Active Substance: FLUTICASONE
     Indication: Rhinitis allergic
     Dosage: UNK
     Route: 065
     Dates: start: 20220607
  14. TADALAFIL [Concomitant]
     Active Substance: TADALAFIL
     Indication: Erectile dysfunction
     Dosage: UNK
     Route: 065
     Dates: start: 20221025
  15. METHYLPREDNISOLONE [Concomitant]
     Active Substance: METHYLPREDNISOLONE
     Indication: Sciatica
     Dosage: UNK
     Route: 065
     Dates: start: 20230104
  16. METHYLPREDNISOLONE [Concomitant]
     Active Substance: METHYLPREDNISOLONE
     Indication: Back pain
  17. OXYCODONE [Concomitant]
     Active Substance: OXYCODONE
     Indication: Sciatica
     Dosage: UNK
     Route: 065
     Dates: start: 20230123
  18. OXYCODONE [Concomitant]
     Active Substance: OXYCODONE
     Indication: Back pain
  19. PREGABALIN [Concomitant]
     Active Substance: PREGABALIN
     Indication: Sciatica
     Dosage: UNK
     Route: 065
     Dates: start: 20230126
  20. PREGABALIN [Concomitant]
     Active Substance: PREGABALIN
     Indication: Sciatica
  21. ZOLPIDEM [Concomitant]
     Active Substance: ZOLPIDEM TARTRATE
     Indication: Insomnia
     Dosage: UNK
     Route: 065
     Dates: start: 2011
  22. IBUPROFEN [Concomitant]
     Active Substance: IBUPROFEN
     Indication: Pain
     Dosage: UNK
     Route: 065
     Dates: start: 2007
  23. LEUPROLIDE [Concomitant]
     Active Substance: LEUPROLIDE
     Indication: Product used for unknown indication
     Dosage: 22.5 MG EVERY 12 WEEKS
     Route: 065
     Dates: start: 20230130

REACTIONS (1)
  - Alanine aminotransferase increased [Not Recovered/Not Resolved]

NARRATIVE: CASE EVENT DATE: 20230316
